FAERS Safety Report 24622722 (Version 4)
Quarter: 2025Q4

REPORT INFORMATION
  Report Type: Spontaneous
  Country: JP (occurrence: JP)
  Receive Date: 20241115
  Receipt Date: 20251031
  Transmission Date: 20260117
  Serious: Yes (Hospitalization, Other)
  Sender: ASTELLAS
  Company Number: JP-ASTELLAS-2024-AER-017576

PATIENT
  Age: 82 Year
  Sex: Male

DRUGS (11)
  1. XOSPATA [Suspect]
     Active Substance: GILTERITINIB
     Indication: Acute myeloid leukaemia refractory
     Route: 048
  2. XOSPATA [Suspect]
     Active Substance: GILTERITINIB
     Route: 048
  3. AZACITIDINE [Concomitant]
     Active Substance: AZACITIDINE
     Indication: Acute myeloid leukaemia
     Route: 065
  4. VENETOCLAX [Concomitant]
     Active Substance: VENETOCLAX
     Indication: Acute myeloid leukaemia
     Route: 065
  5. CYTARABINE [Concomitant]
     Active Substance: CYTARABINE
     Indication: Acute myeloid leukaemia
     Dosage: LOW DOSE
     Route: 065
  6. CYTARABINE OCFOSFATE [Concomitant]
     Active Substance: CYTARABINE OCFOSFATE
     Indication: Acute myeloid leukaemia
     Route: 065
  7. ETOPOSIDE [Concomitant]
     Active Substance: ETOPOSIDE
     Indication: Acute myeloid leukaemia
     Route: 065
  8. CISPLATIN [Concomitant]
     Active Substance: CISPLATIN
     Indication: Acute myeloid leukaemia
     Route: 065
  9. ACLARUBICIN [Concomitant]
     Active Substance: ACLARUBICIN
     Indication: Acute myeloid leukaemia
     Route: 065
  10. AMLODIPINE [Concomitant]
     Active Substance: AMLODIPINE BESYLATE
     Indication: Product used for unknown indication
     Route: 065
  11. CEFEPIME [Concomitant]
     Active Substance: CEFEPIME HYDROCHLORIDE
     Indication: Product used for unknown indication
     Route: 065

REACTIONS (7)
  - Enterocolitis [Recovered/Resolved]
  - Differentiation syndrome [Recovered/Resolved]
  - Gastrointestinal haemorrhage [Recovered/Resolved]
  - Melaena [Recovered/Resolved]
  - Gastrointestinal perforation [Recovered/Resolved]
  - Herpes zoster [Recovered/Resolved]
  - Abscess [Recovered/Resolved]
